FAERS Safety Report 6531495-5 (Version None)
Quarter: 2010Q1

REPORT INFORMATION
  Report Type: 
  Country: None (occurrence: None)
  Receive Date: 20100108
  Receipt Date: 20091228
  Transmission Date: 20100710
  Serious: Yes (Hospitalization)
  Sender: FDA-Public Use
  Company Number: FR-PFIZER INC-2010002231

PATIENT
  Age: 58 Year
  Sex: Male

DRUGS (8)
  1. TENORMIN [Suspect]
     Route: 048
  2. NEXIUM [Suspect]
     Route: 048
  3. ETANERCEPT [Suspect]
     Dosage: UNK
     Route: 058
     Dates: start: 20050331, end: 20090701
  4. NORSET [Suspect]
     Route: 048
  5. STILNOX [Suspect]
     Route: 048
  6. LEVOTHYROXINE SODIUM [Suspect]
     Dosage: 75 UG, UNK
     Route: 048
  7. CALTRATE [Suspect]
     Dosage: 600 MG, UNK
     Route: 048
     Dates: end: 20090924
  8. UN-ALFA [Suspect]
     Dosage: UNK
     Route: 048
     Dates: end: 20090924

REACTIONS (2)
  - NEPHROPATHY [None]
  - RENAL FAILURE [None]
